FAERS Safety Report 24712671 (Version 1)
Quarter: 2024Q4

REPORT INFORMATION
  Report Type: Spontaneous
  Country: US (occurrence: None)
  Receive Date: 20241209
  Receipt Date: 20241209
  Transmission Date: 20250115
  Serious: Yes (Hospitalization)
  Sender: Public
  Company Number: None

PATIENT
  Sex: Female

DRUGS (1)
  1. MYCOPHENOLIC ACID [Suspect]
     Active Substance: MYCOPHENOLIC ACID
     Indication: Inclusion body myositis
     Dosage: 5 ML 2 TIMES A DAY VIA TUBE?
     Route: 050
     Dates: start: 202411

REACTIONS (1)
  - Pyrexia [None]
